FAERS Safety Report 26203683 (Version 1)
Quarter: 2025Q4

REPORT INFORMATION
  Report Type: Spontaneous
  Country: US (occurrence: US)
  Receive Date: 20251226
  Receipt Date: 20251226
  Transmission Date: 20260117
  Serious: No
  Sender: ROCHE
  Company Number: US-ROCHE-10000461209

PATIENT
  Age: 20 Year
  Sex: Female
  Weight: 54.43 kg

DRUGS (5)
  1. XOLAIR [Suspect]
     Active Substance: OMALIZUMAB
     Indication: Asthma
     Dosage: TAKES 2 150MG INJECTIONS FOR A TOTAL DOSE OF 300MG
     Route: 058
     Dates: start: 202001
  2. XOLAIR [Suspect]
     Active Substance: OMALIZUMAB
  3. ADVAIR HFA [Concomitant]
     Active Substance: FLUTICASONE PROPIONATE\SALMETEROL XINAFOATE
     Indication: Asthma
     Dosage: DOSE IS 115 MCG/21 MCG AND PATIENT TAKES 2 PUFFS TWICE A DAY
     Route: 055
     Dates: start: 202412
  4. SPIRIVA [Concomitant]
     Active Substance: TIOTROPIUM BROMIDE MONOHYDRATE
     Indication: Asthma
     Dosage: 2 PUFFS ONCE DAILY
     Route: 055
     Dates: start: 2020
  5. ZYRTEC [Concomitant]
     Active Substance: CETIRIZINE HYDROCHLORIDE
     Indication: Asthma
     Route: 048
     Dates: start: 2015

REACTIONS (4)
  - Accidental underdose [Unknown]
  - Accidental exposure to product [Unknown]
  - Asthma [Recovered/Resolved]
  - Needle issue [Unknown]

NARRATIVE: CASE EVENT DATE: 20251104
